FAERS Safety Report 6465825-X (Version None)
Quarter: 2009Q4

REPORT INFORMATION
  Report Type: 
  Country: None (occurrence: None)
  Receive Date: 20091124
  Receipt Date: 20091116
  Transmission Date: 20100525
  Serious: Yes (Life-Threatening, Hospitalization)
  Sender: FDA-Public Use
  Company Number: 2009-0442

PATIENT
  Age: 54 Year
  Sex: Male

DRUGS (3)
  1. DYSPORT [Suspect]
     Indication: TALIPES
     Dosage: (500 UNITS, 1 IN 4 M)
  2. LIORESAL [Concomitant]
  3. TAMSULOSIN HCL [Concomitant]

REACTIONS (11)
  - ASTHENIA [None]
  - BLOOD PH DECREASED [None]
  - DYSPNOEA [None]
  - DYSSTASIA [None]
  - HYPERCAPNIA [None]
  - MUSCULAR WEAKNESS [None]
  - NEUROMUSCULAR TOXICITY [None]
  - PO2 DECREASED [None]
  - RESPIRATORY FAILURE [None]
  - TACHYPNOEA [None]
  - VITAL CAPACITY DECREASED [None]
